FAERS Safety Report 5201034-X (Version None)
Quarter: 2007Q1

REPORT INFORMATION
  Report Type: 
  Country: None (occurrence: None)
  Receive Date: 20070103
  Receipt Date: 20061221
  Transmission Date: 20070707
  Serious: Yes (Other)
  Sender: FDA-Public Use
  Company Number: TPA2006A02268

PATIENT
  Age: 44 Year
  Sex: Female
  Weight: 61.2356 kg

DRUGS (4)
  1. ACTOS [Suspect]
     Indication: INSULIN RESISTANCE
     Dosage: 30 MG, PER ORAL
     Route: 048
     Dates: start: 20040901
  2. VITAMIN D [Concomitant]
  3. GLUCOPHAGE [Concomitant]
  4. TOPICAL CORTISONE (CORTISONE) [Concomitant]

REACTIONS (4)
  - ANAPHYLACTIC REACTION [None]
  - HYPERSENSITIVITY [None]
  - PAIN IN JAW [None]
  - TOOTHACHE [None]
